FAERS Safety Report 23522562 (Version 13)
Quarter: 2024Q4

REPORT INFORMATION
  Report Type: Report from Study
  Country: US (occurrence: US)
  Receive Date: 20240214
  Receipt Date: 20241003
  Transmission Date: 20250115
  Serious: Yes (Hospitalization, Other)
  Sender: SANOFI AVENTIS
  Company Number: US-SA-2023SA388146

PATIENT
  Age: 71 Year
  Sex: Male
  Weight: 88.3 kg

DRUGS (46)
  1. DOCETAXEL [Suspect]
     Active Substance: DOCETAXEL
     Indication: Prostate cancer
     Dosage: 50 MG/M2, Q3W;TOTAL DOSE: 93 MG);
     Route: 042
     Dates: start: 20230825, end: 20230825
  2. DOCETAXEL [Suspect]
     Active Substance: DOCETAXEL
     Dosage: 60 MG/M2, Q3W;(TOTAL DOSE:114 MG);
     Route: 042
     Dates: start: 20230915, end: 20230915
  3. DOCETAXEL [Suspect]
     Active Substance: DOCETAXEL
     Dosage: 60 MG/M2, Q3W;(TOTAL DOSE: 114 MG);
     Route: 042
     Dates: start: 20231006, end: 20231006
  4. DOCETAXEL [Suspect]
     Active Substance: DOCETAXEL
     Dosage: 60 MG/M2, Q3W;(TOTAL DOSE: 114 MG);
     Route: 042
     Dates: start: 20231027, end: 20231027
  5. DOCETAXEL [Suspect]
     Active Substance: DOCETAXEL
     Dosage: 60 MG/M2, Q3W;(TOTAL DOSE: 114 MG);
     Route: 042
     Dates: start: 20231117, end: 20231117
  6. DOCETAXEL [Suspect]
     Active Substance: DOCETAXEL
     Dosage: 60 MG/M2, Q3W;(TOTAL DOSE: 114 MG);
     Route: 042
     Dates: start: 20240308, end: 20240308
  7. DOCETAXEL [Suspect]
     Active Substance: DOCETAXEL
     Dosage: 60 MG/M2, Q3W;(TOTAL DOSE: 114 MG);
     Route: 042
     Dates: start: 20240329, end: 20240329
  8. DOCETAXEL [Suspect]
     Active Substance: DOCETAXEL
     Dosage: 60 MG/M2, Q3W;(TOTAL DOSE: 60 MG);
     Route: 042
     Dates: start: 20240419, end: 20240419
  9. DOCETAXEL [Suspect]
     Active Substance: DOCETAXEL
     Dosage: 60 MG/M2, Q3W;(TOTAL DOSE: 114 MG);
     Route: 042
     Dates: start: 20240510, end: 20240510
  10. DOCETAXEL [Suspect]
     Active Substance: DOCETAXEL
     Dosage: 50 MG/M2, Q3W;(TOTAL DOSE: 76MG);
     Route: 042
     Dates: start: 20240531, end: 20240531
  11. DOCETAXEL [Suspect]
     Active Substance: DOCETAXEL
     Dosage: 50 MG/M2, Q3W;(TOTAL DOSE: 76MG);
     Route: 042
     Dates: start: 20240621, end: 20240621
  12. CARBOPLATIN [Suspect]
     Active Substance: CARBOPLATIN
     Indication: Prostate cancer
     Dosage: 255.3 MG/ML, Q3W
     Route: 042
     Dates: start: 20230825, end: 20230825
  13. CARBOPLATIN [Suspect]
     Active Substance: CARBOPLATIN
     Dosage: 275.38 MG/ML, Q3W
     Route: 042
     Dates: start: 20230915, end: 20230915
  14. CARBOPLATIN [Suspect]
     Active Substance: CARBOPLATIN
     Dosage: 372.4 MG/ML, Q3W
     Route: 042
     Dates: start: 20231006, end: 20231006
  15. CARBOPLATIN [Suspect]
     Active Substance: CARBOPLATIN
     Dosage: 285 MG/ML, Q3W
     Route: 042
     Dates: start: 20231027, end: 20231027
  16. CARBOPLATIN [Suspect]
     Active Substance: CARBOPLATIN
     Dosage: 367.6 MG/ML, Q3W
     Route: 042
     Dates: start: 20231117, end: 20231117
  17. CARBOPLATIN [Suspect]
     Active Substance: CARBOPLATIN
     Dosage: 210.9 MG/ML, Q3W
     Route: 042
     Dates: start: 20240308, end: 20240308
  18. CARBOPLATIN [Suspect]
     Active Substance: CARBOPLATIN
     Dosage: 274.2 MG/ML, Q3W
     Route: 042
     Dates: start: 20240329, end: 20240329
  19. NEURONTIN [Concomitant]
     Active Substance: GABAPENTIN
     Dosage: UNK
     Dates: start: 20220629
  20. LUPRON [Concomitant]
     Active Substance: LEUPROLIDE ACETATE
     Dosage: UNK
     Dates: start: 20220617
  21. MAGNESIUM OXIDE [Concomitant]
     Active Substance: MAGNESIUM OXIDE
     Dosage: UNK
     Dates: start: 20230822
  22. MELATONIN [Concomitant]
     Active Substance: MELATONIN
     Dosage: UNK
     Dates: start: 20190313
  23. TOPROL XL [Concomitant]
     Active Substance: METOPROLOL SUCCINATE
     Dosage: UNK
     Dates: start: 20190322
  24. NITROSTAT [Concomitant]
     Active Substance: NITROGLYCERIN
     Dosage: UNK
     Dates: start: 20190324
  25. ZOFRAN [Concomitant]
     Active Substance: ONDANSETRON HYDROCHLORIDE
     Dosage: UNK
     Dates: start: 20230809
  26. PROTONIX [Concomitant]
     Active Substance: PANTOPRAZOLE SODIUM
     Dosage: UNK
     Dates: start: 20221114
  27. DELTASONE [Concomitant]
     Active Substance: PREDNISONE
     Dosage: UNK
     Dates: start: 20230809
  28. FLOMAX [Concomitant]
     Active Substance: TAMSULOSIN HYDROCHLORIDE
     Dosage: UNK
     Dates: start: 20210527
  29. EFFEXOR [Concomitant]
     Active Substance: VENLAFAXINE HYDROCHLORIDE
     Dosage: UNK
     Dates: start: 20230601
  30. LOVAZA [Concomitant]
     Active Substance: OMEGA-3-ACID ETHYL ESTERS
     Dosage: UNK
     Dates: start: 20220105
  31. VITAMIN D3 [Concomitant]
     Active Substance: CHOLECALCIFEROL
     Dosage: UNK
     Dates: start: 20200303
  32. VITAMINS [Concomitant]
     Active Substance: VITAMINS
     Dosage: UNK
     Dates: start: 20200304
  33. LORATADINE [Concomitant]
     Active Substance: LORATADINE
     Dosage: UNK
     Dates: start: 20230915
  34. BIOTENE DRY MOUTH [SODIUM FLUOROPHOSPHATE] [Concomitant]
     Dosage: UNK
     Dates: start: 20230909
  35. HYDROCORTISONE [Concomitant]
     Active Substance: HYDROCORTISONE
     Dosage: UNK
     Dates: start: 20230922
  36. DIPHENHYDRAMINE [Concomitant]
     Active Substance: DIPHENHYDRAMINE
     Dosage: UNK
     Dates: start: 20230922
  37. MIRALAX [Concomitant]
     Active Substance: POLYETHYLENE GLYCOL 3350
     Dosage: UNK
     Route: 065
     Dates: start: 20231122, end: 20231128
  38. LIPITOR [Concomitant]
     Active Substance: ATORVASTATIN CALCIUM
     Dosage: UNK
     Route: 065
     Dates: start: 20190322
  39. PLAVIX [Concomitant]
     Active Substance: CLOPIDOGREL BISULFATE
     Dosage: UNK
     Route: 065
     Dates: start: 20190322
  40. CYANOCOBALAMIN [Concomitant]
     Active Substance: CYANOCOBALAMIN
     Dosage: UNK
     Dates: start: 20200303
  41. PROLIA [Concomitant]
     Active Substance: DENOSUMAB
     Dosage: UNK
     Dates: start: 20230524
  42. DECADRON [Concomitant]
     Active Substance: DEXAMETHASONE
     Dosage: UNK
     Dates: start: 20230809
  43. FERROUS SULFATE [Concomitant]
     Active Substance: FERROUS SULFATE
     Dosage: UNK
     Dates: start: 20221118
  44. SENOKOT [Concomitant]
     Active Substance: SENNOSIDES
     Dosage: UNK
  45. AMBIEN [Concomitant]
     Active Substance: ZOLPIDEM TARTRATE
     Dosage: UNK
  46. ELIQUIS [Concomitant]
     Active Substance: APIXABAN

REACTIONS (6)
  - Sepsis [Recovered/Resolved]
  - Pneumonia [Recovered/Resolved with Sequelae]
  - Intra-abdominal fluid collection [Recovered/Resolved]
  - Hypervolaemia [Recovered/Resolved]
  - Small intestinal obstruction [Recovered/Resolved]
  - Clostridium difficile colitis [Recovered/Resolved]

NARRATIVE: CASE EVENT DATE: 20231122
